FAERS Safety Report 4297107-9 (Version None)
Quarter: 2004Q1

REPORT INFORMATION
  Report Type: 
  Country: None (occurrence: None)
  Receive Date: 20040217
  Receipt Date: 20040203
  Transmission Date: 20041129
  Serious: Yes (Death, Other)
  Sender: FDA-Public Use
  Company Number: WAES 0402ITA00006

PATIENT
  Age: 13 Year
  Sex: Female

DRUGS (8)
  1. [THERAPY UNSPECIFIED] [Suspect]
  2. AMPHOTERICIN B AND CHOLESTEROL AND DISTEAROYLPHOSPHATIDYLGLYCEROL AND [Suspect]
  3. ANTILYMPHOCYTE IMMUNOGLOBULIN [Suspect]
  4. CANCIDAS [Suspect]
     Indication: ASPERGILLOSIS
  5. CYCLOSPORINE [Suspect]
  6. METHOTREXATE [Suspect]
  7. VORICONAZOLE [Suspect]
     Indication: ASPERGILLOSIS
     Route: 042
  8. VORICONAZOLE [Suspect]
     Route: 042

REACTIONS (10)
  - ASCITES [None]
  - ASPERGILLOSIS [None]
  - CEREBRAL HAEMORRHAGE [None]
  - CONVULSION [None]
  - DRUG INEFFECTIVE [None]
  - DRUG INTERACTION [None]
  - DRUG TOXICITY [None]
  - LIVER DISORDER [None]
  - RENAL FAILURE [None]
  - RESPIRATORY FAILURE [None]
